FAERS Safety Report 9555699 (Version 1)
Quarter: 2013Q3

REPORT INFORMATION
  Report Type: Spontaneous
  Country: US (occurrence: None)
  Receive Date: 20130925
  Receipt Date: 20130925
  Transmission Date: 20140515
  Serious: Yes (Hospitalization, Other)
  Sender: FDA-Public Use
  Company Number: None

PATIENT
  Age: 38 Year
  Sex: Female
  Weight: 61.24 kg

DRUGS (1)
  1. NEOSPORIN [Suspect]
     Indication: INFECTION PROPHYLAXIS
     Dates: start: 20130513, end: 20100516

REACTIONS (1)
  - Dermatitis contact [None]
